FAERS Safety Report 5379824-2 (Version None)
Quarter: 2007Q3

REPORT INFORMATION
  Report Type: 
  Country: None (occurrence: None)
  Receive Date: 20070706
  Receipt Date: 20070703
  Transmission Date: 20080115
  Serious: Yes (Hospitalization)
  Sender: FDA-Public Use
  Company Number: GB-BRISTOL-MYERS SQUIBB COMPANY-13833645

PATIENT
  Age: 5 Year
  Sex: Male
  Weight: 15 kg

DRUGS (5)
  1. ETOPOSIDE [Suspect]
     Indication: NEUROBLASTOMA
     Route: 042
     Dates: start: 20070608, end: 20070609
  2. CYCLOPHOSPHAMIDE [Concomitant]
     Indication: NEUROBLASTOMA
     Route: 042
     Dates: start: 20070608, end: 20070609
  3. MESNA [Concomitant]
     Indication: NEUROBLASTOMA
     Route: 042
     Dates: start: 20070608, end: 20070610
  4. SEPTRIN [Concomitant]
     Indication: NEUROBLASTOMA
     Route: 048
  5. VINCRISTINE [Concomitant]
     Indication: NEUROBLASTOMA
     Route: 042
     Dates: start: 20070608

REACTIONS (2)
  - OXYGEN SATURATION DECREASED [None]
  - PYREXIA [None]
